FAERS Safety Report 6890145-9 (Version None)
Quarter: 2010Q3

REPORT INFORMATION
  Report Type: 
  Country: None (occurrence: None)
  Receive Date: 20100730
  Receipt Date: 20080820
  Transmission Date: 20110219
  Serious: No
  Sender: FDA-Public Use
  Company Number: US-PFIZER INC-2008054705

PATIENT
  Sex: Male
  Weight: 79.83 kg

DRUGS (2)
  1. LIPITOR [Suspect]
     Indication: CARDIAC DISORDER
     Route: 048
  2. LIPITOR [Suspect]
     Indication: BLOOD CHOLESTEROL ABNORMAL

REACTIONS (4)
  - DIVERTICULITIS [None]
  - HEADACHE [None]
  - THYROID FUNCTION TEST ABNORMAL [None]
  - TINEA INFECTION [None]
